FAERS Safety Report 5082258-1 (Version None)
Quarter: 2006Q3

REPORT INFORMATION
  Report Type: 
  Country: None (occurrence: None)
  Receive Date: 20060817
  Receipt Date: 20060807
  Transmission Date: 20061208
  Serious: Yes (Hospitalization)
  Sender: FDA-Public Use
  Company Number: BE-JNJFOC-20060801918

PATIENT
  Sex: Male
  Weight: 83 kg

DRUGS (8)
  1. REMICADE [Suspect]
     Route: 042
  2. REMICADE [Suspect]
     Route: 042
  3. REMICADE [Suspect]
     Route: 042
  4. REMICADE [Suspect]
     Route: 042
  5. REMICADE [Suspect]
     Route: 042
  6. REMICADE [Suspect]
     Indication: CROHN'S DISEASE
     Route: 042
  7. IMURAN [Concomitant]
     Indication: CROHN'S DISEASE
     Route: 065
  8. MEDROL [Concomitant]
     Indication: CROHN'S DISEASE
     Route: 065

REACTIONS (3)
  - ILEAL STENOSIS [None]
  - ILEITIS [None]
  - SMALL INTESTINAL OBSTRUCTION [None]
